FAERS Safety Report 13536228 (Version 1)
Quarter: 2017Q2

REPORT INFORMATION
  Report Type: Report from Study
  Country: DK (occurrence: DK)
  Receive Date: 20170511
  Receipt Date: 20170511
  Transmission Date: 20170830
  Serious: Yes (Death)
  Sender: FDA-Public Use
  Company Number: DK-TEVA-766694ROM

PATIENT
  Age: 29 Year
  Sex: Male

DRUGS (4)
  1. GAMMA-HYDROXYBUTYRATE [Suspect]
     Active Substance: 4-HYDROXYBUTANOIC ACID
     Route: 065
  2. MORPHINE [Suspect]
     Active Substance: MORPHINE
     Route: 065
  3. KETOBEMIDONE [Suspect]
     Active Substance: KETOBEMIDONE
     Dosage: 2-3 TABLETS
     Route: 048
  4. CLONAZEPAM. [Suspect]
     Active Substance: CLONAZEPAM
     Route: 048

REACTIONS (1)
  - Toxicity to various agents [Fatal]
